FAERS Safety Report 6220342-7 (Version None)
Quarter: 2009Q2

REPORT INFORMATION
  Report Type: 
  Country: None (occurrence: None)
  Receive Date: 20090610
  Receipt Date: 20090609
  Transmission Date: 20091009
  Serious: Yes (Hospitalization)
  Sender: FDA-Public Use
  Company Number: FR-PFIZER INC-2009219119

PATIENT
  Age: 35 Year

DRUGS (16)
  1. TRIFLUCAN [Suspect]
     Indication: PROPHYLAXIS
     Dosage: UNK
     Dates: start: 20090127, end: 20090222
  2. ACUPAN [Suspect]
     Dosage: UNK
     Route: 058
     Dates: start: 20090207, end: 20090223
  3. LARGACTIL [Suspect]
     Indication: ANTIEMETIC SUPPORTIVE CARE
     Dosage: 12.5 MG, UNK
     Dates: start: 20090207, end: 20090222
  4. LARGACTIL [Suspect]
     Dosage: UNK
     Dates: start: 20090320
  5. SANDIMMUNE [Suspect]
     Indication: PROPHYLAXIS
     Dosage: 3 MG/KG, UNK
     Dates: start: 20090127, end: 20090222
  6. NEXIUM [Suspect]
     Dosage: 80 MG (NOS)
     Route: 042
     Dates: start: 20090127, end: 20090309
  7. TARGOCID [Suspect]
     Dosage: 400 MG, UNK
     Route: 042
     Dates: start: 20090207, end: 20090224
  8. CELLCEPT [Concomitant]
     Dosage: 750 MG, 3X/DAY
     Dates: start: 20090127, end: 20090309
  9. CANCIDAS [Concomitant]
     Dosage: UNK
     Dates: start: 20090223, end: 20090309
  10. ZOVIRAX [Concomitant]
     Dosage: UNK
     Dates: start: 20090127, end: 20090309
  11. KETAMINE [Concomitant]
     Indication: ANALGESIC THERAPY
     Dosage: 40 MG/ DAY
     Dates: start: 20090208
  12. OXYCODONE [Concomitant]
  13. METHYLPREDNISOLONE [Concomitant]
     Indication: GRAFT VERSUS HOST DISEASE
     Dosage: 60 MG/DAY, UNK
     Dates: start: 20090223
  14. FOSAPREPITANT [Concomitant]
     Dosage: UNK
     Dates: start: 20090127, end: 20090208
  15. PRIMPERAN [Concomitant]
     Dosage: UNK
     Dates: start: 20090216, end: 20090222
  16. TIENAM [Concomitant]
     Dosage: UNK
     Dates: start: 20090224, end: 20090309

REACTIONS (1)
  - HYPONATRAEMIA [None]
